FAERS Safety Report 24220343 (Version 1)
Quarter: 2024Q3

REPORT INFORMATION
  Report Type: Report from Study
  Country: PT (occurrence: PT)
  Receive Date: 20240818
  Receipt Date: 20240818
  Transmission Date: 20241017
  Serious: Yes (Hospitalization, Other)
  Sender: AUROBINDO
  Company Number: PT-AUROBINDO-AUR-APL-2016-11377

PATIENT
  Age: 63 Year
  Sex: Male

DRUGS (2)
  1. DOCETAXEL [Suspect]
     Active Substance: DOCETAXEL\DOCETAXEL ANHYDROUS
     Indication: Hormone-refractory prostate cancer
     Dosage: 75 MG/M2, UNK
     Route: 065
  2. PREDNISOLONE [Concomitant]
     Active Substance: PREDNISOLONE
     Indication: Hormone-refractory prostate cancer
     Dosage: 5 MILLIGRAM, TWO TIMES A DAY,(5 MG BID)
     Route: 065

REACTIONS (7)
  - Septic shock [Unknown]
  - Respiratory disorder [Unknown]
  - Neurotoxicity [Unknown]
  - Ocular toxicity [Unknown]
  - Lacrimation increased [Unknown]
  - Cough [Unknown]
  - Decreased appetite [Unknown]
